FAERS Safety Report 25058861 (Version 1)
Quarter: 2025Q1

REPORT INFORMATION
  Report Type: Spontaneous
  Country: US (occurrence: None)
  Receive Date: 20250307
  Receipt Date: 20250307
  Transmission Date: 20250409
  Serious: Yes (Other)
  Sender: FDA-CTU
  Company Number: None

PATIENT
  Age: 51 Year
  Sex: Female
  Weight: 59.85 kg

DRUGS (9)
  1. NAPROXEN [Suspect]
     Active Substance: NAPROXEN
     Indication: Tendonitis
     Dosage: 1 CAPSULE 3 TIMES A DAY ORAL
     Route: 048
     Dates: start: 20250225, end: 20250301
  2. CITALOPRAM [Concomitant]
     Active Substance: CITALOPRAM
  3. KELNOR 1/35 [Concomitant]
     Active Substance: ETHINYL ESTRADIOL\ETHYNODIOL DIACETATE
  4. VITAMINS [Concomitant]
     Active Substance: VITAMINS
  5. METAMUCIL [Concomitant]
     Active Substance: PLANTAGO SEED
  6. FISH OIL [Concomitant]
     Active Substance: FISH OIL
  7. FLAXSEED [Concomitant]
     Active Substance: FLAX SEED
  8. LACTOBACILLUS ACIDOPHILUS [Concomitant]
     Active Substance: LACTOBACILLUS ACIDOPHILUS
  9. acidophillus [Concomitant]

REACTIONS (5)
  - Nightmare [None]
  - Disorientation [None]
  - Poor quality sleep [None]
  - Haematochezia [None]
  - Constipation [None]

NARRATIVE: CASE EVENT DATE: 20250227
